FAERS Safety Report 15968096 (Version 1)
Quarter: 2019Q1

REPORT INFORMATION
  Report Type: Spontaneous
  Country: RO (occurrence: RO)
  Receive Date: 20190215
  Receipt Date: 20190215
  Transmission Date: 20190418
  Serious: Yes (Death, Hospitalization)
  Sender: FDA-Public Use
  Company Number: RO-PFIZER INC-2019051903

PATIENT
  Age: 52 Year
  Sex: Male

DRUGS (1)
  1. XALKORI [Suspect]
     Active Substance: CRIZOTINIB
     Indication: LUNG ADENOCARCINOMA
     Dosage: UNK
     Dates: start: 201812, end: 20190125

REACTIONS (4)
  - Cardio-respiratory arrest [Fatal]
  - Respiratory failure [Fatal]
  - Tachycardia [Fatal]
  - Pleurisy [Unknown]
